FAERS Safety Report 6331930-1 (Version None)
Quarter: 2009Q3

REPORT INFORMATION
  Report Type: 
  Country: None (occurrence: None)
  Receive Date: 20090828
  Receipt Date: 20090824
  Transmission Date: 20100115
  Serious: Yes (Other)
  Sender: FDA-Public Use
  Company Number: US-JNJCH-2009022819

PATIENT
  Age: 54 Year
  Sex: Female
  Weight: 47.2 kg

DRUGS (1)
  1. LISTERINE WHITENING QUICK DISSOLVING STRIPS [Suspect]
     Indication: DENTAL DISORDER PROPHYLAXIS
     Dosage: TEXT:TWO STRIPS TWICE A DAY
     Route: 048

REACTIONS (5)
  - APPLICATION SITE BURN [None]
  - APPLICATION SITE IRRITATION [None]
  - LIP SWELLING [None]
  - ORAL MUCOSAL EXFOLIATION [None]
  - PRODUCT QUALITY ISSUE [None]
